FAERS Safety Report 11709202 (Version 1)
Quarter: 2015Q4

REPORT INFORMATION
  Report Type: Spontaneous
  Country: US (occurrence: US)
  Receive Date: 20151104
  Receipt Date: 20151104
  Transmission Date: 20160304
  Serious: No
  Sender: FDA-Public Use
  Company Number: US-ELI_LILLY_AND_COMPANY-US201107002185

PATIENT
  Age: 87 Year
  Sex: Female
  Weight: 55 kg

DRUGS (25)
  1. CALCIUM [Concomitant]
     Active Substance: CALCIUM
     Dosage: 600 MG, BID
  2. ZOFRAN [Concomitant]
     Active Substance: ONDANSETRON HYDROCHLORIDE
     Dosage: 4 MG, PRN
     Route: 048
  3. VITAMIN C [Concomitant]
     Active Substance: ASCORBIC ACID
     Dosage: 1000 MG, BID
     Route: 048
  4. ALEVE [Concomitant]
     Active Substance: NAPROXEN SODIUM
     Dosage: UNK, BID
     Route: 048
  5. TEMOVATE [Concomitant]
     Active Substance: CLOBETASOL PROPIONATE
     Dosage: 0.05 %, PRN
     Route: 061
  6. DEXLANSOPRAZOLE [Concomitant]
     Active Substance: DEXLANSOPRAZOLE
     Dosage: UNK, QD
     Route: 048
  7. PRILOSEC [Concomitant]
     Active Substance: OMEPRAZOLE MAGNESIUM
     Dosage: 20 MG, QD
     Route: 048
  8. KLOR-CON M20 [Concomitant]
     Active Substance: POTASSIUM CHLORIDE
     Dosage: UNK, QD
     Route: 048
  9. ULTRAM [Concomitant]
     Active Substance: TRAMADOL HYDROCHLORIDE
     Dosage: 50 MG, PRN
     Route: 048
  10. ZOCOR [Concomitant]
     Active Substance: SIMVASTATIN
     Dosage: 20 MG, QD
     Route: 048
  11. AMBIEN [Concomitant]
     Active Substance: ZOLPIDEM TARTRATE
     Dosage: 5 MG, EACH EVENING
  12. CENTRUM SILVER [Concomitant]
     Active Substance: MINERALS\VITAMINS
     Dosage: UNK, QD
     Route: 048
  13. TYLENOL EXTRA STRENGTH [Concomitant]
     Active Substance: ACETAMINOPHEN
     Dosage: 500 MG, PRN
     Route: 048
  14. FORTEO [Suspect]
     Active Substance: TERIPARATIDE
     Dosage: 20 UG, QD
     Route: 058
     Dates: start: 20110601
  15. DEXLANSOPRAZOLE [Concomitant]
     Active Substance: DEXLANSOPRAZOLE
     Dosage: UNK UNK, QD
     Route: 048
     Dates: end: 20110427
  16. BENADRYL [Concomitant]
     Active Substance: DIPHENHYDRAMINE HYDROCHLORIDE
     Dosage: 25 MG, PRN
     Route: 048
  17. EVISTA [Concomitant]
     Active Substance: RALOXIFENE HYDROCHLORIDE
     Dosage: 60 MG, QD
     Route: 048
  18. HYDRODIURIL [Concomitant]
     Active Substance: HYDROCHLOROTHIAZIDE
     Dosage: 25 MG, QD
     Route: 048
  19. BACTRIM DS [Concomitant]
     Active Substance: SULFAMETHOXAZOLE\TRIMETHOPRIM
     Dosage: UNK, QD
  20. VAGIFEM [Concomitant]
     Active Substance: ESTRADIOL
     Dosage: 25 UG, 2/W
     Route: 067
  21. FORTEO [Suspect]
     Active Substance: TERIPARATIDE
     Indication: OSTEOPOROSIS POSTMENOPAUSAL
     Dosage: 20 UG, QD
     Route: 058
     Dates: start: 20110303, end: 20110424
  22. CITRUCEL [Concomitant]
     Active Substance: METHYLCELLULOSE (4000 MPA.S)
     Dosage: UNK, EACH EVENING
     Route: 048
  23. PREDNISONE. [Concomitant]
     Active Substance: PREDNISONE
     Dosage: 5 MG, PRN
     Route: 048
  24. VITAMIN D [Concomitant]
     Active Substance: CHOLECALCIFEROL
     Dosage: 1000 IU, QD
  25. LASIX [Concomitant]
     Active Substance: FUROSEMIDE
     Dosage: 40 MG, PRN
     Route: 048

REACTIONS (30)
  - Tongue geographic [Unknown]
  - Disturbance in attention [Unknown]
  - Drug dose omission [Unknown]
  - Weight decreased [Not Recovered/Not Resolved]
  - Sleep disorder [Unknown]
  - Hyperlipidaemia [Unknown]
  - Abdominal discomfort [Recovered/Resolved]
  - Tongue discolouration [Recovered/Resolved]
  - Dysphagia [Unknown]
  - Diarrhoea [Recovered/Resolved]
  - Adverse event [Unknown]
  - Abdominal pain [Unknown]
  - Movement disorder [Unknown]
  - Hypertension [Unknown]
  - Headache [Unknown]
  - Glossodynia [Recovered/Resolved]
  - Glossitis [Unknown]
  - Tooth disorder [Unknown]
  - Nocturia [Unknown]
  - Dry skin [Unknown]
  - Fatigue [Unknown]
  - Malabsorption [Unknown]
  - Oral pain [Recovered/Resolved]
  - Stomatitis [Unknown]
  - Pain in extremity [Recovered/Resolved]
  - Body temperature decreased [Unknown]
  - Lip pain [Recovered/Resolved]
  - Cheilitis [Recovered/Resolved]
  - Hypothyroidism [Unknown]
  - Oesophageal stenosis [Unknown]

NARRATIVE: CASE EVENT DATE: 20110603
